FAERS Safety Report 25117429 (Version 2)
Quarter: 2025Q3

REPORT INFORMATION
  Report Type: Report from Study
  Country: CA (occurrence: None)
  Receive Date: 20250325
  Receipt Date: 20250730
  Transmission Date: 20251020
  Serious: Yes (Other)
  Sender: ORION
  Company Number: CA-PFIZER INC-202500017507

PATIENT
  Age: 80 Year
  Sex: Female
  Weight: 67 kg

DRUGS (27)
  1. METHOTREXATE [Suspect]
     Active Substance: METHOTREXATE
     Indication: Product used for unknown indication
  2. ERELZI [Suspect]
     Active Substance: ETANERCEPT-SZZS
     Indication: Rheumatoid arthritis
  3. ERELZI [Suspect]
     Active Substance: ETANERCEPT-SZZS
  4. ERELZI [Suspect]
     Active Substance: ETANERCEPT-SZZS
  5. ERELZI [Suspect]
     Active Substance: ETANERCEPT-SZZS
  6. ERELZI [Suspect]
     Active Substance: ETANERCEPT-SZZS
  7. ERELZI [Suspect]
     Active Substance: ETANERCEPT-SZZS
  8. ERELZI [Suspect]
     Active Substance: ETANERCEPT-SZZS
  9. ERELZI [Suspect]
     Active Substance: ETANERCEPT-SZZS
  10. ERELZI [Suspect]
     Active Substance: ETANERCEPT-SZZS
  11. ERELZI [Suspect]
     Active Substance: ETANERCEPT-SZZS
  12. ERELZI [Suspect]
     Active Substance: ETANERCEPT-SZZS
  13. ERELZI [Suspect]
     Active Substance: ETANERCEPT-SZZS
  14. ERELZI [Suspect]
     Active Substance: ETANERCEPT-SZZS
  15. ERELZI [Suspect]
     Active Substance: ETANERCEPT-SZZS
  16. ALTACE [Concomitant]
     Active Substance: RAMIPRIL
  17. AMLODIPINE [Concomitant]
     Active Substance: AMLODIPINE BESYLATE
  18. BETADINE [Concomitant]
     Active Substance: POVIDONE-IODINE
  19. BRIMONIDINE [Concomitant]
     Active Substance: BRIMONIDINE TARTRATE
  20. CALCIUM GLUCONATE [Concomitant]
     Active Substance: CALCIUM GLUCONATE
  21. FOLIC ACID [Concomitant]
     Active Substance: FOLIC ACID
  22. LUMIGAN [Concomitant]
     Active Substance: BIMATOPROST
  23. MELOXICAM [Concomitant]
     Active Substance: MELOXICAM
  24. METFORMIN [Concomitant]
     Active Substance: METFORMIN HYDROCHLORIDE
  25. METHOTREXATE SODIUM [Concomitant]
     Active Substance: METHOTREXATE SODIUM
  26. ROSUVASTATIN CALCIUM [Concomitant]
     Active Substance: ROSUVASTATIN CALCIUM
  27. VITAMIN D NOS [Concomitant]
     Active Substance: CHOLECALCIFEROL\ERGOCALCIFEROL

REACTIONS (14)
  - Drug ineffective [Recovered/Resolved]
  - Abscess limb [Recovered/Resolved]
  - Feeling hot [Recovered/Resolved]
  - Localised infection [Recovered/Resolved]
  - Malaise [Recovered/Resolved]
  - Fine motor skill dysfunction [Recovered/Resolved]
  - Musculoskeletal stiffness [Recovered/Resolved]
  - Nodule [Recovered/Resolved]
  - Peripheral swelling [Recovered/Resolved]
  - Limb injury [Recovered/Resolved]
  - Osteomyelitis [Recovered/Resolved]
  - Pain in extremity [Recovered/Resolved]
  - Product dose omission issue [Recovered/Resolved]
  - Inappropriate schedule of product administration [Recovered/Resolved]
